FAERS Safety Report 9155691 (Version 1)
Quarter: 2013Q1

REPORT INFORMATION
  Report Type: Spontaneous
  Country: US (occurrence: US)
  Receive Date: 20130311
  Receipt Date: 20130311
  Transmission Date: 20140127
  Serious: No
  Sender: FDA-Public Use
  Company Number: US-009507513-1303USA002616

PATIENT
  Sex: Female

DRUGS (1)
  1. DULERA [Suspect]
     Dosage: 2 PUFFS, TWICE A DAY
     Route: 055
     Dates: start: 201207

REACTIONS (3)
  - Renal disorder [Unknown]
  - Underdose [Unknown]
  - Inappropriate schedule of drug administration [Unknown]
